FAERS Safety Report 8405045 (Version 3)
Quarter: 2012Q4

REPORT INFORMATION
  Report Type: 
  Country: US (occurrence: US)
  Receive Date: 20120214
  Receipt Date: 20121106
  Transmission Date: 20130627
  Serious: Yes (Hospitalization)
  Sender: FDA-Public Use
  Company Number: US-GLAXOSMITHKLINE-A0965059A

PATIENT
  Age: 62 Year
  Sex: Female
  Weight: 93.8 kg

DRUGS (17)
  1. ARZERRA [Suspect]
     Indication: CHRONIC LYMPHOCYTIC LEUKAEMIA
     Dosage: 300MG Weekly
     Route: 042
     Dates: start: 20111102
  2. LEVAQUIN [Concomitant]
     Indication: SINUSITIS
     Route: 048
     Dates: start: 20111111
  3. AZITHROMYCIN [Concomitant]
     Indication: SINUSITIS
     Route: 048
     Dates: start: 20111111, end: 20111123
  4. VENLAFAXINE [Concomitant]
     Indication: DEPRESSION
     Route: 048
     Dates: start: 20100421
  5. LOPERAMIDE [Concomitant]
     Indication: DIARRHOEA
     Route: 048
  6. COMPAZINE [Concomitant]
     Indication: NAUSEA
     Route: 048
     Dates: start: 20101012
  7. ZOMIG [Concomitant]
     Indication: HEADACHE
     Route: 048
     Dates: start: 20060301
  8. MEPRON [Concomitant]
     Indication: INFECTION PROPHYLAXIS
     Route: 048
     Dates: start: 20101229
  9. ATENOLOL [Concomitant]
     Indication: HEADACHE
     Route: 048
     Dates: start: 20060301
  10. LORAZEPAM [Concomitant]
  11. AMBIEN [Concomitant]
  12. CLONAZEPAM [Concomitant]
  13. BENADRYL [Concomitant]
  14. FERROUS GLUCONATE [Concomitant]
  15. GABAPENTIN [Concomitant]
  16. POTASSIUM CHLORIDE [Concomitant]
  17. VESICARE [Concomitant]

REACTIONS (6)
  - Pneumonia viral [Recovered/Resolved]
  - Hypoxia [Recovered/Resolved]
  - Mental status changes [Recovered/Resolved]
  - Diarrhoea [Recovered/Resolved]
  - Somnolence [Recovered/Resolved]
  - Gait disturbance [Recovered/Resolved]
